FAERS Safety Report 9536384 (Version 1)
Quarter: 2013Q2

REPORT INFORMATION
  Report Type: Spontaneous
  Country: US (occurrence: None)
  Receive Date: 20130517
  Receipt Date: 20130517
  Transmission Date: 20140414
  Serious: No
  Sender: FDA-Public Use
  Company Number: 1000042152

PATIENT
  Age: 44 Year
  Sex: Female

DRUGS (2)
  1. VIIBRYD (VILAZODONE HYDROCHLORIDE) (10 MILLIGRAM, TABLETS) [Suspect]
     Indication: DEPRESSION
     Route: 048
     Dates: start: 201210, end: 2012
  2. ATENOLOL (ATENOLOL) (ATENOLOL) [Concomitant]

REACTIONS (4)
  - Hallucination [None]
  - Panic attack [None]
  - Dizziness [None]
  - Palpitations [None]
